FAERS Safety Report 6833793-4 (Version None)
Quarter: 2010Q3

REPORT INFORMATION
  Report Type: 
  Country: None (occurrence: None)
  Receive Date: 20100712
  Receipt Date: 20070403
  Transmission Date: 20110219
  Serious: No
  Sender: FDA-Public Use
  Company Number: US-PFIZER INC-2007027072

PATIENT
  Sex: Female
  Weight: 49.9 kg

DRUGS (7)
  1. CHANTIX [Suspect]
     Indication: SMOKING CESSATION THERAPY
     Dates: start: 20070301
  2. XANAX [Concomitant]
     Indication: ANXIETY
  3. ULTRAM [Concomitant]
     Indication: PAIN
  4. ZOLOFT [Concomitant]
  5. ZETIA [Concomitant]
  6. TEMAZEPAM [Concomitant]
     Indication: SLEEP DISORDER
  7. INDERAL [Concomitant]
     Indication: HEART RATE INCREASED

REACTIONS (2)
  - FEELING JITTERY [None]
  - HEART RATE INCREASED [None]
